FAERS Safety Report 14153096 (Version 1)
Quarter: 2017Q4

REPORT INFORMATION
  Report Type: Spontaneous
  Country: CH (occurrence: CH)
  Receive Date: 20171102
  Receipt Date: 20171102
  Transmission Date: 20180321
  Serious: Yes (Hospitalization)
  Sender: FDA-Public Use
  Company Number: CH-009507513-1710CHE012913

PATIENT
  Age: 84 Year
  Sex: Male
  Weight: 73 kg

DRUGS (5)
  1. MEPERIDINE HYDROCHLORIDE. [Suspect]
     Active Substance: MEPERIDINE HYDROCHLORIDE
     Dosage: 300 MG, QD (300-400 MG)
     Route: 058
  2. CLARITHROMYCIN. [Suspect]
     Active Substance: CLARITHROMYCIN
     Indication: ATYPICAL MYCOBACTERIAL INFECTION
     Dosage: UNK
     Dates: start: 201708
  3. IMIGRAN (SUMATRIPTAN) [Suspect]
     Active Substance: SUMATRIPTAN
     Dosage: 50 MG, SIX TIMES DAILY
     Route: 048
     Dates: start: 201708, end: 201708
  4. TIENAM [Suspect]
     Active Substance: CILASTATIN SODIUM\IMIPENEM
     Indication: ATYPICAL MYCOBACTERIAL INFECTION
     Dosage: 500 MG, TID
     Route: 042
     Dates: start: 201708, end: 201708
  5. TOBRAMYCIN. [Concomitant]
     Active Substance: TOBRAMYCIN
     Indication: ATYPICAL MYCOBACTERIAL INFECTION
     Dosage: UNK
     Dates: start: 201708

REACTIONS (2)
  - Status epilepticus [Recovered/Resolved]
  - Petit mal epilepsy [Recovered/Resolved]

NARRATIVE: CASE EVENT DATE: 201708
